FAERS Safety Report 18919663 (Version 1)
Quarter: 2021Q1

REPORT INFORMATION
  Report Type: Report from Study
  Country: BR (occurrence: BR)
  Receive Date: 20210221
  Receipt Date: 20210221
  Transmission Date: 20210420
  Serious: Yes (Hospitalization)
  Sender: FDA-Public Use
  Company Number: BR-BIOGEN-2021BI00979318

PATIENT
  Age: 57 Year
  Sex: Female

DRUGS (3)
  1. ESTRADIOL. [Concomitant]
     Active Substance: ESTRADIOL
     Indication: MENOPAUSE
     Route: 065
     Dates: start: 2018
  2. TECFIDERA [Suspect]
     Active Substance: DIMETHYL FUMARATE
     Indication: MULTIPLE SCLEROSIS
     Route: 048
     Dates: start: 20190223
  3. UTROGESTAN [Concomitant]
     Active Substance: PROGESTERONE
     Indication: MENOPAUSE
     Route: 065
     Dates: start: 2018

REACTIONS (14)
  - Head injury [Not Recovered/Not Resolved]
  - Injury [Not Recovered/Not Resolved]
  - Malnutrition [Unknown]
  - Labyrinthitis [Recovered/Resolved]
  - Back pain [Not Recovered/Not Resolved]
  - Cerebral thrombosis [Unknown]
  - Memory impairment [Unknown]
  - Gait disturbance [Not Recovered/Not Resolved]
  - Skull fracture [Not Recovered/Not Resolved]
  - Fall [Recovered/Resolved]
  - Ear haemorrhage [Recovered/Resolved]
  - Spinal disorder [Not Recovered/Not Resolved]
  - Flushing [Recovered/Resolved]
  - Pruritus [Recovered/Resolved]

NARRATIVE: CASE EVENT DATE: 201908
